FAERS Safety Report 16162277 (Version 1)
Quarter: 2019Q2

REPORT INFORMATION
  Report Type: Spontaneous
  Country: SE (occurrence: SE)
  Receive Date: 20190405
  Receipt Date: 20190405
  Transmission Date: 20190711
  Serious: Yes (Other)
  Sender: FDA-Public Use
  Company Number: SE-MICRO LABS LIMITED-ML2019-00846

PATIENT
  Age: 79 Year
  Sex: Male

DRUGS (3)
  1. CLAVULANIC ACID [Concomitant]
     Active Substance: CLAVULANIC ACID
  2. TICARCILLIN [Concomitant]
     Active Substance: TICARCILLIN
  3. LEVOFLOXACIN. [Suspect]
     Active Substance: LEVOFLOXACIN
     Indication: LUNG DISORDER
     Route: 042

REACTIONS (2)
  - Encephalopathy [Recovered/Resolved]
  - Myoclonus [Recovered/Resolved]
